FAERS Safety Report 16531690 (Version 2)
Quarter: 2019Q3

REPORT INFORMATION
  Report Type: Report from Study
  Country: US (occurrence: US)
  Receive Date: 20190704
  Receipt Date: 20190909
  Transmission Date: 20191004
  Serious: No
  Sender: FDA-Public Use
  Company Number: US-ALEXION PHARMACEUTICALS INC.-A201909920

PATIENT
  Sex: Female

DRUGS (1)
  1. SOLIRIS [Suspect]
     Active Substance: ECULIZUMAB
     Indication: ATYPICAL HAEMOLYTIC URAEMIC SYNDROME
     Dosage: UNK
     Route: 065

REACTIONS (6)
  - Balance disorder [Unknown]
  - Temporomandibular joint syndrome [Unknown]
  - Fall [Unknown]
  - Dyspepsia [Unknown]
  - Dizziness [Unknown]
  - Abdominal pain upper [Unknown]
